FAERS Safety Report 5773398-X (Version None)
Quarter: 2008Q2

REPORT INFORMATION
  Report Type: 
  Country: None (occurrence: None)
  Receive Date: 20080616
  Receipt Date: 20080606
  Transmission Date: 20081010
  Serious: Yes (Life-Threatening, Other)
  Sender: FDA-Public Use
  Company Number: PT-BAYER-200820241GPV

PATIENT
  Age: 56 Year
  Sex: Female
  Weight: 87 kg

DRUGS (9)
  1. APROTININ [Suspect]
     Indication: UNDERDOSE
     Route: 042
  2. LORAZEPAM [Concomitant]
     Indication: PREMEDICATION
     Route: 065
  3. MORPHINE [Concomitant]
     Indication: PREMEDICATION
     Route: 065
  4. ETOMIDATE [Concomitant]
     Indication: INDUCTION OF ANAESTHESIA
     Route: 042
  5. FENTANYL [Concomitant]
     Indication: INDUCTION OF ANAESTHESIA
     Route: 042
  6. ROCURONIUM BROMIDE [Concomitant]
     Indication: INDUCTION OF ANAESTHESIA
     Route: 042
  7. CEFAZOLIN [Concomitant]
     Indication: DRUG USE FOR UNKNOWN INDICATION
     Route: 042
  8. DEXTROSE [Concomitant]
     Indication: MEDICATION DILUTION
     Route: 042
  9. SEVOFLURANE [Concomitant]
     Indication: MAINTENANCE OF ANAESTHESIA
     Route: 042

REACTIONS (5)
  - ANAPHYLACTIC REACTION [None]
  - BRADYCARDIA [None]
  - BRONCHOSPASM [None]
  - CARDIAC ARREST [None]
  - SHOCK [None]
